FAERS Safety Report 5737374-5 (Version None)
Quarter: 2008Q2

REPORT INFORMATION
  Report Type: 
  Country: None (occurrence: None)
  Receive Date: 20080514
  Receipt Date: 20080511
  Transmission Date: 20081010
  Serious: Yes (Life-Threatening, Other)
  Sender: FDA-Public Use
  Company Number: PHHY2008BR07628

PATIENT
  Age: 28 Year
  Sex: Female
  Weight: 75 kg

DRUGS (2)
  1. TEGRETOL [Suspect]
     Indication: INCORRECT DOSE ADMINISTERED
     Dosage: UNK, ONCE/SINGLE
     Route: 048
     Dates: start: 20080511
  2. DIAZEPAM [Suspect]
     Dosage: UNK, ONCE/SINGLE
     Route: 048
     Dates: start: 20080511

REACTIONS (4)
  - COMA [None]
  - GASTRIC LAVAGE [None]
  - GLASGOW COMA SCALE ABNORMAL [None]
  - SUICIDE ATTEMPT [None]
